FAERS Safety Report 18217773 (Version 1)
Quarter: 2020Q3

REPORT INFORMATION
  Report Type: Spontaneous
  Country: NZ (occurrence: NZ)
  Receive Date: 20200901
  Receipt Date: 20200901
  Transmission Date: 20201103
  Serious: Yes (Other)
  Sender: FDA-Public Use
  Company Number: NZ-MACLEODS PHARMACEUTICALS US LTD-MAC2020027830

PATIENT

DRUGS (3)
  1. LAMIVUDINE. [Suspect]
     Active Substance: LAMIVUDINE
     Indication: HEPATITIS B E ANTIBODY POSITIVE
     Dosage: 100 MILLIGRAM, QD
     Route: 048
     Dates: start: 20100907, end: 20121129
  2. ACLASTA [Suspect]
     Active Substance: ZOLEDRONIC ACID
     Indication: OSTEOPENIA
     Dosage: 5 MILLIGRAM
     Route: 042
     Dates: start: 20180522
  3. VIREAD [Suspect]
     Active Substance: TENOFOVIR DISOPROXIL FUMARATE
     Indication: HEPATITIS B E ANTIGEN POSITIVE
     Dosage: 300 MILLIGRAM, QD
     Route: 048
     Dates: start: 20120809, end: 20190929

REACTIONS (4)
  - Drug resistance [Unknown]
  - Osteopenia [Recovering/Resolving]
  - Hypophosphataemic osteomalacia [Recovering/Resolving]
  - Fanconi syndrome [Recovered/Resolved]
